FAERS Safety Report 8000551-7 (Version None)
Quarter: 2011Q4

REPORT INFORMATION
  Report Type: 
  Country: None (occurrence: None)
  Receive Date: 20111216
  Receipt Date: 20111205
  Transmission Date: 20120403
  Serious: Yes (Other)
  Sender: FDA-Public Use
  Company Number: JP-2011-11356

PATIENT
  Age: 83 Year
  Sex: Female
  Weight: 44 kg

DRUGS (10)
  1. LASIX [Concomitant]
  2. AMLODIN OD (AMLODIPINE BESILATE) ORODISPERSIBLE TABLET [Concomitant]
  3. GLUCONSAN K (POTASSIUM GLUCONATE) TABLET [Concomitant]
  4. NATRIX (INDAPAMIDE) TABLET [Concomitant]
  5. SAMSCA [Suspect]
     Indication: HYPONATRAEMIA
     Dosage: 15 MG MILLIGRAM(S), QD, ORAL 7.5 MG MILLIGRAM(S), QD, ORAL
     Route: 048
     Dates: start: 20110719, end: 20110725
  6. SAMSCA [Suspect]
     Indication: HYPONATRAEMIA
     Dosage: 15 MG MILLIGRAM(S), QD, ORAL 7.5 MG MILLIGRAM(S), QD, ORAL
     Route: 048
     Dates: start: 20110726, end: 20110728
  7. CONIEL (BENIDIPINE HYDROCHLORIDE) [Concomitant]
  8. LUPRAC (TORASEMIDE) TABLET [Concomitant]
  9. RABEPRAZOLE SODIUM [Concomitant]
  10. CRESTOR [Concomitant]

REACTIONS (3)
  - ALANINE AMINOTRANSFERASE INCREASED [None]
  - LIVER DISORDER [None]
  - ASPARTATE AMINOTRANSFERASE INCREASED [None]
